FAERS Safety Report 5951748-9 (Version None)
Quarter: 2008Q4

REPORT INFORMATION
  Report Type: 
  Country: None (occurrence: None)
  Receive Date: 20081113
  Receipt Date: 20081110
  Transmission Date: 20090506
  Serious: Yes (Other)
  Sender: FDA-Public Use
  Company Number: DE-MERCK-0811DEU00035

PATIENT
  Sex: Female

DRUGS (1)
  1. PROPECIA [Suspect]
     Route: 065

REACTIONS (4)
  - ABORTION SPONTANEOUS [None]
  - DRUG EXPOSURE DURING PREGNANCY [None]
  - INFERTILITY FEMALE [None]
  - PATERNAL DRUGS AFFECTING FOETUS [None]
